FAERS Safety Report 11059884 (Version 1)
Quarter: 2015Q2

REPORT INFORMATION
  Report Type: Spontaneous
  Country: US (occurrence: None)
  Receive Date: 20150422
  Receipt Date: 20150422
  Transmission Date: 20150821
  Serious: Yes (Other)
  Sender: FDA-Public Use
  Company Number: 001901647A

PATIENT
  Age: 37 Year
  Sex: Female

DRUGS (3)
  1. PROACTIV REPAIRING TREATMENT [Suspect]
     Active Substance: BENZOYL PEROXIDE
     Indication: ACNE
     Dosage: TWICE DAILY DERMAL
     Dates: start: 201407, end: 201501
  2. DOXEPIN [Concomitant]
     Active Substance: DOXEPIN
  3. PROACTIV RENEWING CLEANSER [Suspect]
     Active Substance: BENZOYL PEROXIDE
     Indication: ACNE
     Dosage: TWICE DAILY DERMAL
     Route: 061
     Dates: start: 201407, end: 201501

REACTIONS (1)
  - Swelling face [None]

NARRATIVE: CASE EVENT DATE: 201501
